FAERS Safety Report 23645888 (Version 3)
Quarter: 2025Q1

REPORT INFORMATION
  Report Type: Spontaneous
  Country: PL (occurrence: PL)
  Receive Date: 20240319
  Receipt Date: 20250319
  Transmission Date: 20250408
  Serious: Yes (Hospitalization, Disabling, Other)
  Sender: STRIDES
  Company Number: None

PATIENT
  Age: 83 Year
  Sex: Female
  Weight: 91 kg

DRUGS (310)
  1. DONEPEZIL [Interacting]
     Active Substance: DONEPEZIL
     Indication: Product used for unknown indication
     Route: 065
  2. DONEPEZIL [Interacting]
     Active Substance: DONEPEZIL
     Route: 065
  3. POTASSIUM CHLORIDE [Interacting]
     Active Substance: POTASSIUM CHLORIDE
     Indication: Product used for unknown indication
     Route: 065
  4. POTASSIUM CHLORIDE [Interacting]
     Active Substance: POTASSIUM CHLORIDE
     Route: 065
  5. POTASSIUM CHLORIDE [Interacting]
     Active Substance: POTASSIUM CHLORIDE
     Route: 065
  6. POTASSIUM CHLORIDE [Interacting]
     Active Substance: POTASSIUM CHLORIDE
     Route: 065
  7. POTASSIUM CHLORIDE [Interacting]
     Active Substance: POTASSIUM CHLORIDE
     Route: 048
  8. POTASSIUM CHLORIDE [Interacting]
     Active Substance: POTASSIUM CHLORIDE
     Route: 048
  9. POTASSIUM CHLORIDE [Interacting]
     Active Substance: POTASSIUM CHLORIDE
     Route: 065
  10. POTASSIUM CHLORIDE [Interacting]
     Active Substance: POTASSIUM CHLORIDE
     Route: 048
  11. POTASSIUM CHLORIDE [Interacting]
     Active Substance: POTASSIUM CHLORIDE
     Route: 065
  12. POTASSIUM CHLORIDE [Interacting]
     Active Substance: POTASSIUM CHLORIDE
     Route: 065
  13. ZOLPIDEM [Interacting]
     Active Substance: ZOLPIDEM TARTRATE
     Indication: Depression
     Route: 065
  14. ZOLPIDEM [Interacting]
     Active Substance: ZOLPIDEM TARTRATE
     Route: 065
  15. ZOLPIDEM [Interacting]
     Active Substance: ZOLPIDEM TARTRATE
     Route: 065
  16. ZOLPIDEM [Interacting]
     Active Substance: ZOLPIDEM TARTRATE
     Route: 065
  17. ZOLPIDEM [Interacting]
     Active Substance: ZOLPIDEM TARTRATE
     Route: 065
  18. ZOLPIDEM [Interacting]
     Active Substance: ZOLPIDEM TARTRATE
     Route: 065
  19. ZOLPIDEM [Interacting]
     Active Substance: ZOLPIDEM TARTRATE
     Route: 065
  20. ZOLPIDEM [Interacting]
     Active Substance: ZOLPIDEM TARTRATE
     Route: 065
  21. ZOLPIDEM [Interacting]
     Active Substance: ZOLPIDEM TARTRATE
     Route: 065
  22. ZOLPIDEM [Interacting]
     Active Substance: ZOLPIDEM TARTRATE
     Route: 065
  23. ZOLPIDEM [Interacting]
     Active Substance: ZOLPIDEM TARTRATE
     Route: 065
  24. ZOLPIDEM [Interacting]
     Active Substance: ZOLPIDEM TARTRATE
     Route: 048
  25. ZOLPIDEM [Interacting]
     Active Substance: ZOLPIDEM TARTRATE
  26. ALPRAZOLAM [Interacting]
     Active Substance: ALPRAZOLAM
     Indication: Depression
     Route: 065
  27. ALPRAZOLAM [Interacting]
     Active Substance: ALPRAZOLAM
     Route: 065
  28. ALPRAZOLAM [Interacting]
     Active Substance: ALPRAZOLAM
     Route: 065
  29. ALPRAZOLAM [Interacting]
     Active Substance: ALPRAZOLAM
     Route: 005
  30. ALPRAZOLAM [Interacting]
     Active Substance: ALPRAZOLAM
     Route: 065
  31. ALPRAZOLAM [Interacting]
     Active Substance: ALPRAZOLAM
     Route: 048
  32. ALPRAZOLAM [Interacting]
     Active Substance: ALPRAZOLAM
     Route: 065
  33. ALPRAZOLAM [Interacting]
     Active Substance: ALPRAZOLAM
     Route: 065
  34. ALPRAZOLAM [Interacting]
     Active Substance: ALPRAZOLAM
     Route: 065
  35. ALPRAZOLAM [Interacting]
     Active Substance: ALPRAZOLAM
     Route: 065
  36. ALPRAZOLAM [Interacting]
     Active Substance: ALPRAZOLAM
     Route: 065
  37. ALPRAZOLAM [Interacting]
     Active Substance: ALPRAZOLAM
     Route: 048
  38. ISOSORBIDE MONONITRATE [Interacting]
     Active Substance: ISOSORBIDE MONONITRATE
     Indication: Coronary artery disease
     Route: 065
  39. ISOSORBIDE MONONITRATE [Interacting]
     Active Substance: ISOSORBIDE MONONITRATE
     Route: 065
  40. ISOSORBIDE MONONITRATE [Interacting]
     Active Substance: ISOSORBIDE MONONITRATE
     Route: 065
  41. ISOSORBIDE MONONITRATE [Interacting]
     Active Substance: ISOSORBIDE MONONITRATE
     Route: 065
  42. ISOSORBIDE MONONITRATE [Interacting]
     Active Substance: ISOSORBIDE MONONITRATE
  43. ISOSORBIDE MONONITRATE [Interacting]
     Active Substance: ISOSORBIDE MONONITRATE
     Route: 048
  44. FUROSEMIDE [Interacting]
     Active Substance: FUROSEMIDE
     Indication: Product used for unknown indication
     Route: 065
  45. FUROSEMIDE [Interacting]
     Active Substance: FUROSEMIDE
     Route: 065
  46. FUROSEMIDE [Interacting]
     Active Substance: FUROSEMIDE
     Route: 065
  47. FUROSEMIDE [Interacting]
     Active Substance: FUROSEMIDE
     Route: 065
  48. FUROSEMIDE [Interacting]
     Active Substance: FUROSEMIDE
     Route: 048
  49. FUROSEMIDE [Interacting]
     Active Substance: FUROSEMIDE
     Route: 065
  50. FUROSEMIDE [Interacting]
     Active Substance: FUROSEMIDE
     Route: 065
  51. FUROSEMIDE [Interacting]
     Active Substance: FUROSEMIDE
     Route: 065
  52. METFORMIN [Interacting]
     Active Substance: METFORMIN HYDROCHLORIDE
     Indication: Type 2 diabetes mellitus
     Route: 065
  53. METFORMIN [Interacting]
     Active Substance: METFORMIN HYDROCHLORIDE
     Route: 065
  54. METFORMIN [Interacting]
     Active Substance: METFORMIN HYDROCHLORIDE
     Route: 048
  55. METFORMIN [Interacting]
     Active Substance: METFORMIN HYDROCHLORIDE
     Route: 065
  56. DEXTROSE\NIKETHAMIDE [Interacting]
     Active Substance: DEXTROSE\NIKETHAMIDE
     Indication: Product used for unknown indication
     Route: 065
  57. DEXTROSE\NIKETHAMIDE [Interacting]
     Active Substance: DEXTROSE\NIKETHAMIDE
     Route: 065
  58. DEXTROSE\NIKETHAMIDE [Interacting]
     Active Substance: DEXTROSE\NIKETHAMIDE
     Route: 065
  59. DEXTROSE\NIKETHAMIDE [Interacting]
     Active Substance: DEXTROSE\NIKETHAMIDE
     Route: 065
  60. DEXTROSE\NIKETHAMIDE [Interacting]
     Active Substance: DEXTROSE\NIKETHAMIDE
     Route: 065
  61. DEXTROSE\NIKETHAMIDE [Interacting]
     Active Substance: DEXTROSE\NIKETHAMIDE
     Route: 065
  62. DEXTROSE\NIKETHAMIDE [Interacting]
     Active Substance: DEXTROSE\NIKETHAMIDE
     Route: 065
  63. DEXTROSE\NIKETHAMIDE [Interacting]
     Active Substance: DEXTROSE\NIKETHAMIDE
     Route: 065
  64. DEXTROSE\NIKETHAMIDE [Interacting]
     Active Substance: DEXTROSE\NIKETHAMIDE
     Route: 065
  65. DEXTROSE\NIKETHAMIDE [Interacting]
     Active Substance: DEXTROSE\NIKETHAMIDE
     Route: 065
  66. DEXTROSE\NIKETHAMIDE [Interacting]
     Active Substance: DEXTROSE\NIKETHAMIDE
     Route: 065
  67. DEXTROSE\NIKETHAMIDE [Interacting]
     Active Substance: DEXTROSE\NIKETHAMIDE
     Route: 065
  68. DEXTROSE\NIKETHAMIDE [Interacting]
     Active Substance: DEXTROSE\NIKETHAMIDE
     Route: 065
  69. DEXTROSE\NIKETHAMIDE [Interacting]
     Active Substance: DEXTROSE\NIKETHAMIDE
     Route: 065
  70. DEXTROSE\NIKETHAMIDE [Interacting]
     Active Substance: DEXTROSE\NIKETHAMIDE
     Route: 065
  71. LEVOTHYROXINE [Interacting]
     Active Substance: LEVOTHYROXINE
     Indication: Product used for unknown indication
     Route: 065
  72. LEVOTHYROXINE [Interacting]
     Active Substance: LEVOTHYROXINE
     Route: 048
  73. LEVOTHYROXINE [Interacting]
     Active Substance: LEVOTHYROXINE
     Route: 048
  74. LEVOTHYROXINE [Interacting]
     Active Substance: LEVOTHYROXINE
     Route: 065
  75. LEVOTHYROXINE [Interacting]
     Active Substance: LEVOTHYROXINE
     Route: 005
  76. LEVOTHYROXINE [Interacting]
     Active Substance: LEVOTHYROXINE
     Route: 065
  77. CHOLECALCIFEROL [Interacting]
     Active Substance: CHOLECALCIFEROL
     Indication: Product used for unknown indication
     Route: 065
  78. CHOLECALCIFEROL [Interacting]
     Active Substance: CHOLECALCIFEROL
     Route: 065
  79. CHOLECALCIFEROL [Interacting]
     Active Substance: CHOLECALCIFEROL
     Route: 065
  80. RAMIPRIL [Interacting]
     Active Substance: RAMIPRIL
     Indication: Cardiac failure
     Route: 048
  81. RAMIPRIL [Interacting]
     Active Substance: RAMIPRIL
     Route: 065
  82. RAMIPRIL [Interacting]
     Active Substance: RAMIPRIL
     Route: 065
  83. RAMIPRIL [Interacting]
     Active Substance: RAMIPRIL
     Route: 065
  84. RAMIPRIL [Interacting]
     Active Substance: RAMIPRIL
     Route: 065
  85. RAMIPRIL [Interacting]
     Active Substance: RAMIPRIL
     Route: 065
  86. RAMIPRIL [Interacting]
     Active Substance: RAMIPRIL
     Route: 065
  87. RAMIPRIL [Interacting]
     Active Substance: RAMIPRIL
     Route: 065
  88. RAMIPRIL [Interacting]
     Active Substance: RAMIPRIL
  89. ACETAMINOPHEN [Interacting]
     Active Substance: ACETAMINOPHEN
     Indication: Product used for unknown indication
     Route: 065
  90. ACETAMINOPHEN [Interacting]
     Active Substance: ACETAMINOPHEN
     Route: 065
  91. ACETAMINOPHEN [Interacting]
     Active Substance: ACETAMINOPHEN
     Route: 065
  92. ACETAMINOPHEN [Interacting]
     Active Substance: ACETAMINOPHEN
     Route: 065
  93. ACETAMINOPHEN [Interacting]
     Active Substance: ACETAMINOPHEN
     Route: 065
  94. ACETAMINOPHEN [Interacting]
     Active Substance: ACETAMINOPHEN
     Route: 065
  95. ACETAMINOPHEN [Interacting]
     Active Substance: ACETAMINOPHEN
     Route: 065
  96. ACETAMINOPHEN [Interacting]
     Active Substance: ACETAMINOPHEN
     Route: 065
  97. ACETAMINOPHEN [Interacting]
     Active Substance: ACETAMINOPHEN
     Route: 065
  98. ACETAMINOPHEN [Interacting]
     Active Substance: ACETAMINOPHEN
     Route: 065
  99. ACETAMINOPHEN [Interacting]
     Active Substance: ACETAMINOPHEN
  100. HYDROCHLOROTHIAZIDE [Interacting]
     Active Substance: HYDROCHLOROTHIAZIDE
     Indication: Product used for unknown indication
     Route: 065
  101. HYDROCHLOROTHIAZIDE [Interacting]
     Active Substance: HYDROCHLOROTHIAZIDE
     Indication: Product used for unknown indication
     Route: 065
  102. HYDROCHLOROTHIAZIDE [Interacting]
     Active Substance: HYDROCHLOROTHIAZIDE
     Route: 065
  103. HYDROCHLOROTHIAZIDE [Interacting]
     Active Substance: HYDROCHLOROTHIAZIDE
     Route: 065
  104. HYDROCHLOROTHIAZIDE [Interacting]
     Active Substance: HYDROCHLOROTHIAZIDE
     Route: 065
  105. HYDROCHLOROTHIAZIDE [Interacting]
     Active Substance: HYDROCHLOROTHIAZIDE
     Route: 048
  106. HYDROCHLOROTHIAZIDE [Interacting]
     Active Substance: HYDROCHLOROTHIAZIDE
     Route: 065
  107. HYDROCHLOROTHIAZIDE [Interacting]
     Active Substance: HYDROCHLOROTHIAZIDE
     Route: 065
  108. HYDROCHLOROTHIAZIDE [Interacting]
     Active Substance: HYDROCHLOROTHIAZIDE
     Route: 065
  109. HYDROCHLOROTHIAZIDE [Interacting]
     Active Substance: HYDROCHLOROTHIAZIDE
  110. HYDROCHLOROTHIAZIDE [Interacting]
     Active Substance: HYDROCHLOROTHIAZIDE
     Route: 065
  111. HYDROCHLOROTHIAZIDE [Interacting]
     Active Substance: HYDROCHLOROTHIAZIDE
     Route: 065
  112. HYDROCHLOROTHIAZIDE [Interacting]
     Active Substance: HYDROCHLOROTHIAZIDE
     Route: 065
  113. HYDROCHLOROTHIAZIDE [Interacting]
     Active Substance: HYDROCHLOROTHIAZIDE
     Route: 065
  114. HYDROCHLOROTHIAZIDE [Interacting]
     Active Substance: HYDROCHLOROTHIAZIDE
     Route: 065
  115. HYDROCHLOROTHIAZIDE [Interacting]
     Active Substance: HYDROCHLOROTHIAZIDE
     Route: 065
  116. HYDROCHLOROTHIAZIDE [Interacting]
     Active Substance: HYDROCHLOROTHIAZIDE
     Route: 065
  117. ATORVASTATIN [Interacting]
     Active Substance: ATORVASTATIN
     Indication: Product used for unknown indication
     Route: 048
  118. ATORVASTATIN [Interacting]
     Active Substance: ATORVASTATIN
     Route: 065
  119. ATORVASTATIN [Interacting]
     Active Substance: ATORVASTATIN
     Route: 065
  120. ATORVASTATIN [Interacting]
     Active Substance: ATORVASTATIN
     Route: 065
  121. ATORVASTATIN [Interacting]
     Active Substance: ATORVASTATIN
  122. ATORVASTATIN [Interacting]
     Active Substance: ATORVASTATIN
     Route: 065
  123. ATORVASTATIN [Interacting]
     Active Substance: ATORVASTATIN
     Route: 065
  124. ATORVASTATIN [Interacting]
     Active Substance: ATORVASTATIN
     Route: 065
  125. ATORVASTATIN [Interacting]
     Active Substance: ATORVASTATIN
     Route: 065
  126. ATORVASTATIN [Interacting]
     Active Substance: ATORVASTATIN
     Route: 065
  127. ATORVASTATIN [Interacting]
     Active Substance: ATORVASTATIN
     Route: 065
  128. ALBUTEROL [Interacting]
     Active Substance: ALBUTEROL
     Indication: Product used for unknown indication
     Route: 065
  129. ALBUTEROL [Interacting]
     Active Substance: ALBUTEROL
     Indication: Product used for unknown indication
     Route: 065
  130. ALBUTEROL [Interacting]
     Active Substance: ALBUTEROL
     Route: 048
  131. ALBUTEROL [Interacting]
     Active Substance: ALBUTEROL
     Route: 065
  132. ALBUTEROL [Interacting]
     Active Substance: ALBUTEROL
     Route: 065
  133. ALBUTEROL [Interacting]
     Active Substance: ALBUTEROL
     Route: 065
  134. ALBUTEROL [Interacting]
     Active Substance: ALBUTEROL
     Route: 065
  135. ALBUTEROL [Interacting]
     Active Substance: ALBUTEROL
     Route: 065
  136. ALBUTEROL [Interacting]
     Active Substance: ALBUTEROL
  137. BETAHISTINE HYDROCHLORIDE [Interacting]
     Active Substance: BETAHISTINE HYDROCHLORIDE
     Indication: Dizziness
     Route: 065
  138. BETAHISTINE HYDROCHLORIDE [Interacting]
     Active Substance: BETAHISTINE HYDROCHLORIDE
     Route: 065
  139. BETAHISTINE HYDROCHLORIDE [Interacting]
     Active Substance: BETAHISTINE HYDROCHLORIDE
     Route: 065
  140. BETAHISTINE HYDROCHLORIDE [Interacting]
     Active Substance: BETAHISTINE HYDROCHLORIDE
     Route: 065
  141. BETAHISTINE HYDROCHLORIDE [Interacting]
     Active Substance: BETAHISTINE HYDROCHLORIDE
     Route: 048
  142. BETAHISTINE HYDROCHLORIDE [Interacting]
     Active Substance: BETAHISTINE HYDROCHLORIDE
     Route: 065
  143. QUETIAPINE [Interacting]
     Active Substance: QUETIAPINE
     Indication: Product used for unknown indication
     Route: 065
  144. QUETIAPINE [Interacting]
     Active Substance: QUETIAPINE
     Route: 065
  145. NIKETHAMIDE [Interacting]
     Active Substance: NIKETHAMIDE
     Indication: Product used for unknown indication
     Route: 065
  146. NIKETHAMIDE [Interacting]
     Active Substance: NIKETHAMIDE
     Route: 065
  147. DABIGATRAN [Interacting]
     Active Substance: DABIGATRAN
     Indication: Product used for unknown indication
     Route: 065
  148. DABIGATRAN [Interacting]
     Active Substance: DABIGATRAN
     Route: 065
  149. DABIGATRAN [Interacting]
     Active Substance: DABIGATRAN
     Route: 065
  150. DABIGATRAN [Interacting]
     Active Substance: DABIGATRAN
     Route: 065
  151. DABIGATRAN [Interacting]
     Active Substance: DABIGATRAN
     Route: 048
  152. DABIGATRAN [Interacting]
     Active Substance: DABIGATRAN
     Route: 048
  153. DABIGATRAN [Interacting]
     Active Substance: DABIGATRAN
     Route: 065
  154. DABIGATRAN [Interacting]
     Active Substance: DABIGATRAN
     Route: 048
  155. DABIGATRAN [Interacting]
     Active Substance: DABIGATRAN
     Route: 065
  156. CITALOPRAM [Interacting]
     Active Substance: CITALOPRAM
     Indication: Depression
     Route: 065
  157. CITALOPRAM [Interacting]
     Active Substance: CITALOPRAM
     Route: 065
  158. CITALOPRAM [Interacting]
     Active Substance: CITALOPRAM
     Route: 048
  159. CITALOPRAM [Interacting]
     Active Substance: CITALOPRAM
     Route: 065
  160. CITALOPRAM [Interacting]
     Active Substance: CITALOPRAM
     Route: 048
  161. CITALOPRAM [Interacting]
     Active Substance: CITALOPRAM
     Route: 065
  162. CITALOPRAM [Interacting]
     Active Substance: CITALOPRAM
  163. METOPROLOL [Interacting]
     Active Substance: METOPROLOL
     Indication: Hypertension
     Route: 065
  164. METOPROLOL [Interacting]
     Active Substance: METOPROLOL
     Indication: Type 2 diabetes mellitus
     Route: 065
  165. METOPROLOL [Interacting]
     Active Substance: METOPROLOL
     Indication: Type 2 diabetes mellitus
     Route: 048
  166. METOPROLOL [Interacting]
     Active Substance: METOPROLOL
     Route: 065
  167. METOPROLOL [Interacting]
     Active Substance: METOPROLOL
     Route: 065
  168. METOPROLOL [Interacting]
     Active Substance: METOPROLOL
     Route: 065
  169. METOPROLOL [Interacting]
     Active Substance: METOPROLOL
     Route: 065
  170. METOPROLOL [Interacting]
     Active Substance: METOPROLOL
     Route: 065
  171. METOPROLOL [Interacting]
     Active Substance: METOPROLOL
     Route: 065
  172. METOPROLOL [Interacting]
     Active Substance: METOPROLOL
     Route: 065
  173. METOPROLOL [Interacting]
     Active Substance: METOPROLOL
  174. METOPROLOL [Interacting]
     Active Substance: METOPROLOL
     Route: 065
  175. METOPROLOL [Interacting]
     Active Substance: METOPROLOL
     Route: 065
  176. METOPROLOL [Interacting]
     Active Substance: METOPROLOL
     Route: 065
  177. METOPROLOL [Interacting]
     Active Substance: METOPROLOL
  178. METOPROLOL [Interacting]
     Active Substance: METOPROLOL
  179. METOPROLOL [Interacting]
     Active Substance: METOPROLOL
  180. SPIRONOLACTONE [Interacting]
     Active Substance: SPIRONOLACTONE
     Indication: Product used for unknown indication
     Route: 065
  181. SPIRONOLACTONE [Interacting]
     Active Substance: SPIRONOLACTONE
     Route: 065
  182. SPIRONOLACTONE [Interacting]
     Active Substance: SPIRONOLACTONE
     Route: 065
  183. SPIRONOLACTONE [Interacting]
     Active Substance: SPIRONOLACTONE
     Route: 065
  184. SPIRONOLACTONE [Interacting]
     Active Substance: SPIRONOLACTONE
     Route: 065
  185. SPIRONOLACTONE [Interacting]
     Active Substance: SPIRONOLACTONE
     Route: 048
  186. SPIRONOLACTONE [Interacting]
     Active Substance: SPIRONOLACTONE
     Route: 065
  187. SPIRONOLACTONE [Interacting]
     Active Substance: SPIRONOLACTONE
     Route: 065
  188. SPIRONOLACTONE [Interacting]
     Active Substance: SPIRONOLACTONE
     Route: 065
  189. SPIRONOLACTONE [Interacting]
     Active Substance: SPIRONOLACTONE
  190. BENSERAZIDE\LEVODOPA [Interacting]
     Active Substance: BENSERAZIDE\LEVODOPA
     Indication: Product used for unknown indication
     Route: 065
  191. BENSERAZIDE\LEVODOPA [Interacting]
     Active Substance: BENSERAZIDE\LEVODOPA
     Route: 065
  192. DENOSUMAB [Interacting]
     Active Substance: DENOSUMAB
     Indication: Product used for unknown indication
     Route: 065
  193. POTASSIUM CHLORIDE\RIBOFLAVIN 5^-PHOSPHATE SODIUM [Suspect]
     Active Substance: POTASSIUM CHLORIDE\RIBOFLAVIN 5^-PHOSPHATE SODIUM
     Indication: Product used for unknown indication
     Route: 065
  194. POTASSIUM CHLORIDE\RIBOFLAVIN 5^-PHOSPHATE SODIUM [Suspect]
     Active Substance: POTASSIUM CHLORIDE\RIBOFLAVIN 5^-PHOSPHATE SODIUM
     Route: 065
  195. POTASSIUM CHLORIDE [Suspect]
     Active Substance: POTASSIUM CHLORIDE
     Indication: Product used for unknown indication
     Route: 065
  196. TORSEMIDE [Suspect]
     Active Substance: TORSEMIDE
     Indication: Product used for unknown indication
     Route: 048
  197. BETAHISTINE HYDROCHLORIDE [Interacting]
     Active Substance: BETAHISTINE HYDROCHLORIDE
     Indication: Dizziness
     Route: 065
  198. HYDROXYZINE [Suspect]
     Active Substance: HYDROXYZINE HYDROCHLORIDE
     Indication: Product used for unknown indication
     Route: 065
  199. GLICLAZIDE [Suspect]
     Active Substance: GLICLAZIDE
     Indication: Type 2 diabetes mellitus
     Route: 065
  200. GLICLAZIDE [Suspect]
     Active Substance: GLICLAZIDE
     Route: 065
  201. GLICLAZIDE [Suspect]
     Active Substance: GLICLAZIDE
     Route: 065
  202. GLICLAZIDE [Suspect]
     Active Substance: GLICLAZIDE
     Route: 065
  203. GLICLAZIDE [Suspect]
     Active Substance: GLICLAZIDE
     Route: 065
  204. GLICLAZIDE [Suspect]
     Active Substance: GLICLAZIDE
     Route: 065
  205. OMEPRAZOLE [Interacting]
     Active Substance: OMEPRAZOLE
     Indication: Product used for unknown indication
     Route: 065
  206. OMEPRAZOLE [Interacting]
     Active Substance: OMEPRAZOLE
     Route: 065
  207. OMEPRAZOLE [Interacting]
     Active Substance: OMEPRAZOLE
     Route: 065
  208. OMEPRAZOLE [Interacting]
     Active Substance: OMEPRAZOLE
     Route: 065
  209. OMEPRAZOLE [Interacting]
     Active Substance: OMEPRAZOLE
     Route: 065
  210. DABIGATRAN [Suspect]
     Active Substance: DABIGATRAN
     Indication: Product used for unknown indication
     Route: 065
  211. DABIGATRAN [Suspect]
     Active Substance: DABIGATRAN
     Route: 065
  212. DABIGATRAN [Suspect]
     Active Substance: DABIGATRAN
     Route: 065
  213. DABIGATRAN [Suspect]
     Active Substance: DABIGATRAN
     Route: 065
  214. CITALOPRAM HYDROBROMIDE [Interacting]
     Active Substance: CITALOPRAM HYDROBROMIDE
     Indication: Product used for unknown indication
     Route: 065
  215. CITALOPRAM HYDROBROMIDE [Interacting]
     Active Substance: CITALOPRAM HYDROBROMIDE
     Route: 065
  216. CITALOPRAM HYDROBROMIDE [Interacting]
     Active Substance: CITALOPRAM HYDROBROMIDE
     Route: 065
  217. POTASSIUM CHLORIDE\RIBOFLAVIN 5^-PHOSPHATE SODIUM [Interacting]
     Active Substance: POTASSIUM CHLORIDE\RIBOFLAVIN 5^-PHOSPHATE SODIUM
     Indication: Product used for unknown indication
     Route: 065
  218. POTASSIUM CHLORIDE\RIBOFLAVIN 5^-PHOSPHATE SODIUM [Interacting]
     Active Substance: POTASSIUM CHLORIDE\RIBOFLAVIN 5^-PHOSPHATE SODIUM
     Route: 065
  219. POTASSIUM CHLORIDE\RIBOFLAVIN 5^-PHOSPHATE SODIUM [Interacting]
     Active Substance: POTASSIUM CHLORIDE\RIBOFLAVIN 5^-PHOSPHATE SODIUM
     Route: 065
  220. ISOSORBIDE MONONITRATE [Interacting]
     Active Substance: ISOSORBIDE MONONITRATE
     Indication: Coronary artery disease
     Route: 065
  221. ISOSORBIDE MONONITRATE [Interacting]
     Active Substance: ISOSORBIDE MONONITRATE
     Route: 065
  222. ISOSORBIDE MONONITRATE [Interacting]
     Active Substance: ISOSORBIDE MONONITRATE
     Route: 065
  223. ISOSORBIDE MONONITRATE [Interacting]
     Active Substance: ISOSORBIDE MONONITRATE
     Route: 065
  224. ISOSORBIDE MONONITRATE [Interacting]
     Active Substance: ISOSORBIDE MONONITRATE
     Route: 065
  225. ISOSORBIDE MONONITRATE [Interacting]
     Active Substance: ISOSORBIDE MONONITRATE
     Route: 065
  226. ISOSORBIDE MONONITRATE [Interacting]
     Active Substance: ISOSORBIDE MONONITRATE
     Route: 048
  227. LEVOTHYROXINE SODIUM [Interacting]
     Active Substance: LEVOTHYROXINE SODIUM
     Indication: Product used for unknown indication
     Route: 065
  228. LEVOTHYROXINE SODIUM [Interacting]
     Active Substance: LEVOTHYROXINE SODIUM
     Route: 065
  229. DABIGATRAN ETEXILATE [Interacting]
     Active Substance: DABIGATRAN ETEXILATE
     Indication: Product used for unknown indication
     Route: 065
  230. DABIGATRAN ETEXILATE [Interacting]
     Active Substance: DABIGATRAN ETEXILATE
     Route: 065
  231. DABIGATRAN ETEXILATE [Interacting]
     Active Substance: DABIGATRAN ETEXILATE
     Route: 065
  232. BETAHISTINE HYDROCHLORIDE [Interacting]
     Active Substance: BETAHISTINE HYDROCHLORIDE
     Indication: Product used for unknown indication
     Route: 065
  233. BETAHISTINE HYDROCHLORIDE [Interacting]
     Active Substance: BETAHISTINE HYDROCHLORIDE
     Route: 065
  234. METOCLOPRAMIDE [Interacting]
     Active Substance: METOCLOPRAMIDE
     Indication: Constipation
     Route: 065
  235. METOCLOPRAMIDE [Interacting]
     Active Substance: METOCLOPRAMIDE
     Route: 065
  236. METOCLOPRAMIDE [Interacting]
     Active Substance: METOCLOPRAMIDE
     Route: 065
  237. METOCLOPRAMIDE [Interacting]
     Active Substance: METOCLOPRAMIDE
     Route: 065
  238. METOCLOPRAMIDE [Interacting]
     Active Substance: METOCLOPRAMIDE
  239. METOCLOPRAMIDE [Interacting]
     Active Substance: METOCLOPRAMIDE
     Route: 065
  240. METOCLOPRAMIDE [Interacting]
     Active Substance: METOCLOPRAMIDE
     Route: 065
  241. METOCLOPRAMIDE [Interacting]
     Active Substance: METOCLOPRAMIDE
     Route: 065
  242. METOCLOPRAMIDE [Interacting]
     Active Substance: METOCLOPRAMIDE
     Route: 065
  243. METOCLOPRAMIDE [Interacting]
     Active Substance: METOCLOPRAMIDE
     Route: 065
  244. OMEPRAZOLE MAGNESIUM [Interacting]
     Active Substance: OMEPRAZOLE MAGNESIUM
     Indication: Product used for unknown indication
     Route: 065
  245. TRAMADOL HYDROCHLORIDE [Interacting]
     Active Substance: TRAMADOL HYDROCHLORIDE
     Indication: Product used for unknown indication
     Route: 065
  246. TRAMADOL HYDROCHLORIDE [Interacting]
     Active Substance: TRAMADOL HYDROCHLORIDE
     Route: 065
  247. TRAMADOL HYDROCHLORIDE [Interacting]
     Active Substance: TRAMADOL HYDROCHLORIDE
     Route: 065
  248. TRAMADOL HYDROCHLORIDE [Interacting]
     Active Substance: TRAMADOL HYDROCHLORIDE
     Route: 065
  249. FUROSEMIDE [Interacting]
     Active Substance: FUROSEMIDE
     Indication: Product used for unknown indication
     Route: 065
  250. FUROSEMIDE [Interacting]
     Active Substance: FUROSEMIDE
     Route: 065
  251. FUROSEMIDE [Interacting]
     Active Substance: FUROSEMIDE
     Route: 065
  252. HYDROXYZINE [Interacting]
     Active Substance: HYDROXYZINE HYDROCHLORIDE
     Indication: Product used for unknown indication
     Route: 065
  253. HYDROXYZINE [Interacting]
     Active Substance: HYDROXYZINE HYDROCHLORIDE
     Route: 065
  254. HYDROXYZINE [Interacting]
     Active Substance: HYDROXYZINE HYDROCHLORIDE
     Route: 065
  255. HYDROXYZINE [Interacting]
     Active Substance: HYDROXYZINE HYDROCHLORIDE
     Route: 065
  256. HYDROXYZINE [Interacting]
     Active Substance: HYDROXYZINE HYDROCHLORIDE
     Route: 065
  257. HYDROXYZINE [Interacting]
     Active Substance: HYDROXYZINE HYDROCHLORIDE
     Route: 065
  258. HYDROXYZINE [Interacting]
     Active Substance: HYDROXYZINE HYDROCHLORIDE
     Route: 065
  259. HYDROXYZINE [Interacting]
     Active Substance: HYDROXYZINE HYDROCHLORIDE
  260. HYDROXYZINE [Interacting]
     Active Substance: HYDROXYZINE HYDROCHLORIDE
     Route: 065
  261. HYDROXYZINE [Interacting]
     Active Substance: HYDROXYZINE HYDROCHLORIDE
     Route: 065
  262. HYDROXYZINE [Interacting]
     Active Substance: HYDROXYZINE HYDROCHLORIDE
     Route: 065
  263. HYDROXYZINE [Interacting]
     Active Substance: HYDROXYZINE HYDROCHLORIDE
     Route: 065
  264. HYDROXYZINE [Interacting]
     Active Substance: HYDROXYZINE HYDROCHLORIDE
  265. HYDROXYZINE [Interacting]
     Active Substance: HYDROXYZINE HYDROCHLORIDE
     Route: 065
  266. DONEPEZIL [Suspect]
     Active Substance: DONEPEZIL
     Indication: Product used for unknown indication
     Route: 065
  267. DONEPEZIL [Suspect]
     Active Substance: DONEPEZIL
     Route: 065
  268. VORTIOXETINE [Concomitant]
     Active Substance: VORTIOXETINE
     Indication: Product used for unknown indication
     Route: 065
  269. VORTIOXETINE [Concomitant]
     Active Substance: VORTIOXETINE
     Indication: Product used for unknown indication
     Route: 065
  270. VORTIOXETINE [Concomitant]
     Active Substance: VORTIOXETINE
     Indication: Product used for unknown indication
  271. DEXTROSE [Concomitant]
     Active Substance: DEXTROSE MONOHYDRATE
     Indication: Product used for unknown indication
     Route: 065
  272. DEXTROSE [Concomitant]
     Active Substance: DEXTROSE MONOHYDRATE
     Route: 065
  273. DEXTROSE [Concomitant]
     Active Substance: DEXTROSE MONOHYDRATE
  274. ALLOPURINOL [Concomitant]
     Active Substance: ALLOPURINOL
     Indication: Product used for unknown indication
     Route: 065
  275. ALLOPURINOL [Concomitant]
     Active Substance: ALLOPURINOL
     Indication: Product used for unknown indication
     Route: 065
  276. HYDROTALCITE [Concomitant]
     Active Substance: HYDROTALCITE
     Indication: Abdominal pain upper
     Route: 065
  277. QUETIAPINE [Concomitant]
     Active Substance: QUETIAPINE
     Indication: Product used for unknown indication
     Route: 065
  278. BETAHISTINE [Interacting]
     Active Substance: BETAHISTINE
     Indication: Product used for unknown indication
     Route: 065
  279. BETAHISTINE [Interacting]
     Active Substance: BETAHISTINE
     Route: 065
  280. BETAHISTINE [Interacting]
     Active Substance: BETAHISTINE
     Route: 065
  281. BETAHISTINE [Interacting]
     Active Substance: BETAHISTINE
     Route: 065
  282. INSULIN NOS [Concomitant]
     Active Substance: INSULIN NOS
     Indication: Blood glucose abnormal
     Route: 065
  283. RUFLOXACIN [Concomitant]
     Active Substance: RUFLOXACIN
     Indication: Nasopharyngitis
     Route: 048
  284. ZOLPIDEM [Concomitant]
     Active Substance: ZOLPIDEM TARTRATE
     Indication: Product used for unknown indication
     Route: 065
  285. OMEPRAZOLE [Concomitant]
     Active Substance: OMEPRAZOLE
     Indication: Product used for unknown indication
     Route: 065
  286. FUROSEMIDE [Concomitant]
     Active Substance: FUROSEMIDE
     Indication: Product used for unknown indication
     Route: 065
  287. HYDROCHLOROTHIAZIDE [Concomitant]
     Active Substance: HYDROCHLOROTHIAZIDE
     Indication: Product used for unknown indication
     Route: 065
  288. METFORMIN [Concomitant]
     Active Substance: METFORMIN HYDROCHLORIDE
     Indication: Type 2 diabetes mellitus
     Route: 065
  289. METFORMIN [Concomitant]
     Active Substance: METFORMIN HYDROCHLORIDE
     Route: 065
  290. DABIGATRAN [Concomitant]
     Active Substance: DABIGATRAN
     Indication: Product used for unknown indication
     Route: 065
  291. TRAMADOL [Concomitant]
     Active Substance: TRAMADOL
     Indication: Product used for unknown indication
     Route: 065
  292. SPIRONOLACTONE [Concomitant]
     Active Substance: SPIRONOLACTONE
     Indication: Product used for unknown indication
     Route: 065
  293. ISOSORBIDE MONONITRATE [Concomitant]
     Active Substance: ISOSORBIDE MONONITRATE
     Indication: Product used for unknown indication
     Route: 065
  294. ALBUTEROL [Concomitant]
     Active Substance: ALBUTEROL
     Indication: Product used for unknown indication
     Route: 065
  295. BETAHISTINE [Concomitant]
     Active Substance: BETAHISTINE
     Indication: Product used for unknown indication
     Route: 065
  296. CITALOPRAM [Concomitant]
     Active Substance: CITALOPRAM
     Indication: Product used for unknown indication
     Route: 065
  297. LEVOTHYROXINE [Concomitant]
     Active Substance: LEVOTHYROXINE
     Indication: Product used for unknown indication
     Route: 065
  298. METOCLOPRAMIDE [Concomitant]
     Active Substance: METOCLOPRAMIDE
     Indication: Product used for unknown indication
     Route: 065
  299. Lan di [Concomitant]
     Indication: Hypertension
     Route: 048
  300. POTASSIUM CHLORIDE [Concomitant]
     Active Substance: POTASSIUM CHLORIDE
     Indication: Product used for unknown indication
     Route: 065
  301. TORSEMIDE [Concomitant]
     Active Substance: TORSEMIDE
     Indication: Product used for unknown indication
     Route: 065
  302. ACETAMINOPHEN [Concomitant]
     Active Substance: ACETAMINOPHEN
     Indication: Product used for unknown indication
     Route: 065
  303. ACETAMINOPHEN [Concomitant]
     Active Substance: ACETAMINOPHEN
     Route: 065
  304. ACETAMINOPHEN [Concomitant]
     Active Substance: ACETAMINOPHEN
     Route: 065
  305. GLICLAZIDE [Concomitant]
     Active Substance: GLICLAZIDE
     Indication: Product used for unknown indication
     Route: 065
  306. RAMIPRIL [Concomitant]
     Active Substance: RAMIPRIL
     Indication: Product used for unknown indication
     Route: 065
  307. METOPROLOL [Concomitant]
     Active Substance: METOPROLOL
     Indication: Product used for unknown indication
     Route: 065
  308. AMLODIPINE BESYLATE [Concomitant]
     Active Substance: AMLODIPINE BESYLATE
     Indication: Hypertension
     Route: 048
  309. ACARBOSE [Concomitant]
     Active Substance: ACARBOSE
     Indication: Hyperglycaemia
     Route: 048
  310. TRAMADOL [Concomitant]
     Active Substance: TRAMADOL
     Indication: Product used for unknown indication
     Route: 065

REACTIONS (25)
  - Blood cholesterol decreased [Unknown]
  - Atrioventricular block first degree [Recovering/Resolving]
  - Drug dependence [Unknown]
  - Medication error [Unknown]
  - Diabetes mellitus inadequate control [Unknown]
  - Initial insomnia [Unknown]
  - Mobility decreased [Recovering/Resolving]
  - Arthralgia [Unknown]
  - Hyperkalaemia [Unknown]
  - Nausea [Unknown]
  - Melaena [Unknown]
  - Depression [Unknown]
  - Fall [Recovering/Resolving]
  - Abdominal pain upper [Unknown]
  - Dizziness [Recovering/Resolving]
  - Dysuria [Unknown]
  - Drug interaction [Unknown]
  - Hypoglycaemia [Recovered/Resolved]
  - Blood creatinine increased [Unknown]
  - General physical health deterioration [Unknown]
  - Off label use [Unknown]
  - Hyponatraemia [Unknown]
  - Orthostatic hypotension [Unknown]
  - Hypotonia [Recovering/Resolving]
  - Blood urea increased [Unknown]

NARRATIVE: CASE EVENT DATE: 20210101
